FAERS Safety Report 17479197 (Version 3)
Quarter: 2021Q1

REPORT INFORMATION
  Report Type: Report from Study
  Country: CO (occurrence: CO)
  Receive Date: 20200228
  Receipt Date: 20210326
  Transmission Date: 20210419
  Serious: Yes (Hospitalization, Other)
  Sender: FDA-Public Use
  Company Number: CO-JNJFOC-20191103731

PATIENT
  Age: 54 Year
  Sex: Female
  Weight: 89 kg

DRUGS (7)
  1. VERAPAMIL [Concomitant]
     Active Substance: VERAPAMIL HYDROCHLORIDE
  2. DIACEREIN [Concomitant]
     Active Substance: DIACEREIN
  3. INSULIN [Concomitant]
     Active Substance: INSULIN NOS
  4. STELARA [Suspect]
     Active Substance: USTEKINUMAB
     Indication: PSORIASIS
     Dosage: LAST APPLICATION OF USTEKINUMAB ON 13?AUG?2020.
     Route: 058
     Dates: start: 20131213, end: 20190627
  5. STELARA [Suspect]
     Active Substance: USTEKINUMAB
     Route: 058
     Dates: start: 20191130
  6. LOSARTAN. [Concomitant]
     Active Substance: LOSARTAN
  7. METFORMIN [Concomitant]
     Active Substance: METFORMIN HYDROCHLORIDE

REACTIONS (8)
  - Cholelithiasis [Recovering/Resolving]
  - Osteoarthritis [Not Recovered/Not Resolved]
  - Product dose omission issue [Unknown]
  - Blood glucose increased [Not Recovered/Not Resolved]
  - Gastroenteritis viral [Recovering/Resolving]
  - Psoriasis [Recovering/Resolving]
  - Psoriasis [Recovered/Resolved]
  - Arthralgia [Not Recovered/Not Resolved]

NARRATIVE: CASE EVENT DATE: 2019
